FAERS Safety Report 11754769 (Version 1)
Quarter: 2015Q4

REPORT INFORMATION
  Report Type: Spontaneous
  Country: BR (occurrence: BR)
  Receive Date: 20151119
  Receipt Date: 20151119
  Transmission Date: 20160304
  Serious: Yes (Other)
  Sender: FDA-Public Use
  Company Number: BR-BAYER-2015-465124

PATIENT
  Sex: Male

DRUGS (1)
  1. NEXAVAR [Suspect]
     Active Substance: SORAFENIB
     Dosage: UNK
     Route: 048
     Dates: start: 201311

REACTIONS (7)
  - Deafness [None]
  - Diarrhoea [None]
  - Photosensitivity reaction [None]
  - Drug ineffective [None]
  - Blindness unilateral [None]
  - Adverse event [None]
  - Neoplasm progression [None]
